FAERS Safety Report 16703905 (Version 2)
Quarter: 2019Q3

REPORT INFORMATION
  Report Type: Spontaneous
  Country: CN (occurrence: CN)
  Receive Date: 20190814
  Receipt Date: 20190904
  Transmission Date: 20191004
  Serious: Yes (Hospitalization)
  Sender: FDA-Public Use
  Company Number: CN-ELI_LILLY_AND_COMPANY-CN201908005814

PATIENT
  Age: 42 Year
  Sex: Female
  Weight: 55 kg

DRUGS (1)
  1. HUMALOG MIX50/50 [Suspect]
     Active Substance: INSULIN LISPRO
     Indication: DIABETES MELLITUS
     Dosage: 10 INTERNATIONAL UNIT, BID
     Route: 058
     Dates: start: 2013, end: 20190731

REACTIONS (3)
  - Blood glucose abnormal [Unknown]
  - Product dose omission [Unknown]
  - Diabetic complication [Unknown]
